FAERS Safety Report 7325871-0 (Version None)
Quarter: 2011Q1

REPORT INFORMATION
  Report Type: 
  Country: None (occurrence: None)
  Receive Date: 20110218
  Receipt Date: 20110215
  Transmission Date: 20110831
  Serious: Yes (Death)
  Sender: FDA-Public Use
  Company Number: 2011SP006502

PATIENT
  Age: 79 Year
  Sex: Male

DRUGS (4)
  1. PROPOFOL [Concomitant]
  2. ESLAX (ROCURONIUM BROMIDE /01245702/) [Suspect]
     Dosage: IV; IV
     Route: 042
     Dates: start: 20110203, end: 20110203
  3. ESLAX (ROCURONIUM BROMIDE /01245702/) [Suspect]
     Dosage: IV; IV
     Route: 042
     Dates: start: 20110202, end: 20110202
  4. SEVOFLURANE [Concomitant]

REACTIONS (2)
  - BLOOD CREATINE PHOSPHOKINASE INCREASED [None]
  - DYSURIA [None]
